FAERS Safety Report 7222036-8 (Version None)
Quarter: 2011Q1

REPORT INFORMATION
  Report Type: 
  Country: None (occurrence: None)
  Receive Date: 20110112
  Receipt Date: 20101230
  Transmission Date: 20110831
  Serious: Yes (Other)
  Sender: FDA-Public Use
  Company Number: GXKR2010GB13631

PATIENT
  Age: 13 Year
  Sex: Male
  Weight: 31.2 kg

DRUGS (6)
  1. RISPERIDONE [Suspect]
     Indication: ATTENTION DEFICIT/HYPERACTIVITY DISORDER
     Dosage: 0.25 MG, BID
     Route: 048
     Dates: start: 20060601
  2. RIMEXOLONE [Suspect]
     Dosage: THREE TIMES A DAY FOR TWO WEEKS
  3. RISPERIDONE [Suspect]
     Indication: AUTISM
  4. METHYLPHENIDATE [Suspect]
     Indication: ATTENTION DEFICIT/HYPERACTIVITY DISORDER
     Dosage: 50 MG, QD
     Route: 048
     Dates: start: 20060901
  5. PREDNISOLONE [Suspect]
  6. METHYLPHENIDATE [Suspect]
     Indication: AUTISM

REACTIONS (13)
  - OCULAR HYPERAEMIA [None]
  - EYE PRURITUS [None]
  - BENIGN INTRACRANIAL HYPERTENSION [None]
  - VISION BLURRED [None]
  - EYE PAIN [None]
  - EYELID OEDEMA [None]
  - EYE SWELLING [None]
  - CONJUNCTIVITIS ALLERGIC [None]
  - CSF PRESSURE INCREASED [None]
  - CONJUNCTIVAL HYPERAEMIA [None]
  - INTRACRANIAL PRESSURE INCREASED [None]
  - PAPILLOEDEMA [None]
  - VISUAL FIELD DEFECT [None]
